FAERS Safety Report 23938272 (Version 1)
Quarter: 2024Q2

REPORT INFORMATION
  Report Type: Spontaneous
  Country: US (occurrence: None)
  Receive Date: 20240604
  Receipt Date: 20240604
  Transmission Date: 20240715
  Serious: Yes (Hospitalization)
  Sender: FDA-Public Use
  Company Number: None

PATIENT
  Age: 60 Year
  Sex: Female

DRUGS (3)
  1. COSENTYX [Suspect]
     Active Substance: SECUKINUMAB
     Indication: Psoriatic arthropathy
     Dosage: FREQUENCY : MONTHLY;?
  2. METHOTREXATE [Suspect]
     Active Substance: METHOTREXATE
  3. LEFLUNOMIDE [Suspect]
     Active Substance: LEFLUNOMIDE

REACTIONS (10)
  - Thrombocytopenia [None]
  - Metabolic acidosis [None]
  - Acidosis [None]
  - Diarrhoea [None]
  - Dehydration [None]
  - Acute kidney injury [None]
  - Oral mucosal blistering [None]
  - Transaminases increased [None]
  - White blood cell count decreased [None]
  - Therapy interrupted [None]

NARRATIVE: CASE EVENT DATE: 20240523
